FAERS Safety Report 7404640-7 (Version None)
Quarter: 2011Q2

REPORT INFORMATION
  Report Type: 
  Country: None (occurrence: None)
  Receive Date: 20110411
  Receipt Date: 20070418
  Transmission Date: 20111010
  Serious: No
  Sender: FDA-Public Use
  Company Number: US-BIOGENIDEC-2007BI008807

PATIENT
  Sex: Female

DRUGS (2)
  1. AVONEX [Concomitant]
     Indication: MULTIPLE SCLEROSIS
     Route: 030
  2. TYSABRI [Suspect]
     Indication: MULTIPLE SCLEROSIS
     Route: 042
     Dates: start: 20070311

REACTIONS (5)
  - MUSCULAR WEAKNESS [None]
  - HEADACHE [None]
  - ASTHENIA [None]
  - DECUBITUS ULCER [None]
  - MUSCLE ATROPHY [None]
